FAERS Safety Report 18124345 (Version 3)
Quarter: 2020Q3

REPORT INFORMATION
  Report Type: Report from Study
  Country: None (occurrence: GB)
  Receive Date: 20200807
  Receipt Date: 20200909
  Transmission Date: 20201103
  Serious: Yes (Other)
  Sender: FDA-Public Use
  Company Number: GB-MDD US OPERATIONS-MDD202008-001567

PATIENT
  Age: 79 Year
  Sex: Female

DRUGS (9)
  1. APOMORPHINE HYDROCHLORIDE [Suspect]
     Active Substance: APOMORPHINE HYDROCHLORIDE
     Indication: PARKINSON^S DISEASE
     Route: 058
     Dates: start: 20170706
  2. SALBUTAMOL [Concomitant]
     Active Substance: ALBUTEROL
     Dosage: NOT PROVIDED
  3. CLONAZEPAM. [Concomitant]
     Active Substance: CLONAZEPAM
  4. APOMORPHINE HYDROCHLORIDE [Suspect]
     Active Substance: APOMORPHINE HYDROCHLORIDE
     Route: 058
     Dates: start: 20171102, end: 20200727
  5. MOMETASONE [Concomitant]
     Active Substance: MOMETASONE
     Dosage: NOT PROVIDED
  6. SERETIDE [Concomitant]
     Active Substance: FLUTICASONE PROPIONATE\SALMETEROL XINAFOATE
     Dosage: NOT PROVIDED
  7. DONEPEZIL. [Concomitant]
     Active Substance: DONEPEZIL
  8. ORAMORPH [Suspect]
     Active Substance: MORPHINE SULFATE
     Indication: PRODUCT USED FOR UNKNOWN INDICATION
     Dosage: NOT PROVIDED
  9. ROPINIROLE. [Concomitant]
     Active Substance: ROPINIROLE
     Indication: PARKINSON^S DISEASE

REACTIONS (4)
  - Unresponsive to stimuli [Recovered/Resolved]
  - Incorrect product administration duration [Unknown]
  - Somnolence [Recovered/Resolved]
  - Overdose [Recovered/Resolved]

NARRATIVE: CASE EVENT DATE: 202007
